FAERS Safety Report 10700319 (Version 1)
Quarter: 2015Q1

REPORT INFORMATION
  Report Type: Spontaneous
  Country: MA (occurrence: None)
  Receive Date: 20150107
  Receipt Date: 20150107
  Transmission Date: 20150721
  Serious: Yes (Hospitalization)
  Sender: FDA-Public Use
  Company Number: FK201406547

PATIENT
  Age: 44 Year
  Sex: Female

DRUGS (3)
  1. OXALIPLATIN (OXALIPLATIN) (OXALIPLATIN) [Suspect]
     Active Substance: OXALIPLATIN
     Indication: COLON CANCER METASTATIC
     Dosage: CYCLICAL
     Route: 041
  2. FLUOROURACIL (MANUFACTURER UNKNOWN) (FLUOROURACIL) (FLUOROURACIL) [Suspect]
     Active Substance: FLUOROURACIL
     Indication: COLON CANCER METASTATIC
     Dosage: CYCLICAL
     Route: 041
  3. BEVACIZUMAB (BEVACIZUMAB) (BEVACIZUMAB) [Suspect]
     Active Substance: BEVACIZUMAB
     Indication: COLON CANCER METASTATIC

REACTIONS (7)
  - Laryngospasm [None]
  - Thrombocytopenia [None]
  - Malignant neoplasm progression [None]
  - Blood pressure increased [None]
  - Colon cancer metastatic [None]
  - Posterior reversible encephalopathy syndrome [None]
  - Diarrhoea [None]
